FAERS Safety Report 8138394-6 (Version None)
Quarter: 2012Q1

REPORT INFORMATION
  Report Type: 
  Country: None (occurrence: None)
  Receive Date: 20120215
  Receipt Date: 20120201
  Transmission Date: 20120608
  Serious: Yes (Death, Hospitalization)
  Sender: FDA-Public Use
  Company Number: ES-ROCHE-1036122

PATIENT
  Sex: Male
  Weight: 78 kg

DRUGS (5)
  1. OXALIPLATIN [Suspect]
     Indication: GASTRIC CANCER
     Dosage: DATE OF LAST DOSE PRIOR TO SAE: 13/DEC/2011
     Route: 042
     Dates: start: 20111122, end: 20120118
  2. PRIMPERAN (SPAIN) [Concomitant]
     Indication: NAUSEA
     Route: 048
     Dates: start: 20111122
  3. LOPERAMIDE HYDROCHLORIDE [Concomitant]
     Indication: DIARRHOEA
     Route: 048
     Dates: start: 20111122
  4. HERCEPTIN [Suspect]
     Indication: GASTRIC CANCER
     Dosage: DATE OF LAST DOSE PRIOR TO SAE: 13/DEC/2011
     Route: 042
     Dates: start: 20111122, end: 20120103
  5. XELODA [Suspect]
     Indication: GASTRIC CANCER
     Dosage: DATE OF LAST DOSE PRIOR TO SAE: 26/DEC/2011
     Route: 048
     Dates: start: 20111122, end: 20120103

REACTIONS (2)
  - BACK PAIN [None]
  - MUCOSAL INFLAMMATION [None]
